FAERS Safety Report 5104607-8 (Version None)
Quarter: 2006Q3

REPORT INFORMATION
  Report Type: 
  Country: None (occurrence: None)
  Receive Date: 20060914
  Receipt Date: 20060519
  Transmission Date: 20061208
  Serious: No
  Sender: FDA-Public Use
  Company Number: US-BRISTOL-MYERS SQUIBB COMPANY-13383179

PATIENT
  Sex: Female

DRUGS (1)
  1. BUSPAR [Suspect]

REACTIONS (1)
  - BREAST FEEDING [None]
